FAERS Safety Report 5061589-5 (Version None)
Quarter: 2006Q3

REPORT INFORMATION
  Report Type: 
  Country: None (occurrence: None)
  Receive Date: 20060721
  Receipt Date: 20060711
  Transmission Date: 20061208
  Serious: Yes (Other)
  Sender: FDA-Public Use
  Company Number: HQWYE895013JUL06

PATIENT
  Sex: Female

DRUGS (1)
  1. PREMARIN [Suspect]
     Dosage: 1.25 MG, 276 MOS. (23 YEARS)
     Dates: start: 19720101, end: 19950101

REACTIONS (1)
  - BREAST CANCER FEMALE [None]
